FAERS Safety Report 14669626 (Version 5)
Quarter: 2018Q2

REPORT INFORMATION
  Report Type: Spontaneous
  Country: JP (occurrence: JP)
  Receive Date: 20180322
  Receipt Date: 20180621
  Transmission Date: 20180711
  Serious: Yes (Hospitalization, Other)
  Sender: FDA-Public Use
  Company Number: JP-GLAXOSMITHKLINE-JP2018JPN045611

PATIENT
  Age: 18 Year
  Sex: Female

DRUGS (1)
  1. RELENZA [Suspect]
     Active Substance: ZANAMIVIR
     Indication: INFLUENZA
     Dosage: UNK
     Route: 055
     Dates: start: 20180307, end: 20180312

REACTIONS (5)
  - Asthenia [Recovered/Resolved]
  - Encephalopathy [Recovered/Resolved]
  - Mania [Recovered/Resolved]
  - Seizure [Recovered/Resolved]
  - Muscular weakness [Recovered/Resolved]

NARRATIVE: CASE EVENT DATE: 201803
